FAERS Safety Report 8422127-X (Version None)
Quarter: 2012Q2

REPORT INFORMATION
  Report Type: 
  Country: None (occurrence: None)
  Receive Date: 20120608
  Receipt Date: 20120604
  Transmission Date: 20120825
  Serious: Yes (Hospitalization, Other)
  Sender: FDA-Public Use
  Company Number: PHHY2012BE048334

PATIENT
  Sex: Female

DRUGS (10)
  1. BUMETANIDE [Concomitant]
     Dosage: 1 MG, UNK
  2. ZOLEDRONOC ACID [Suspect]
     Indication: OSTEOPOROSIS
     Dosage: 5 MG, UNK
     Route: 042
  3. ALDACTONE [Concomitant]
  4. FOLAVIT [Concomitant]
     Indication: SICKLE CELL ANAEMIA
     Dosage: 4 MG, UNK
  5. PRAVASTATIN [Concomitant]
     Dosage: 40 MG, UNK
  6. UNI-DIAMICRON [Concomitant]
     Indication: DIABETES MELLITUS
     Dosage: 30 MG, UNK
  7. LANOXIN [Concomitant]
     Indication: VENTRICULAR FIBRILLATION
     Dosage: 250 MG, UNK
  8. WARFARIN SODIUM [Concomitant]
     Dosage: UNK UKN, UNK
  9. ZESTRIL [Concomitant]
     Dosage: 5 MG, UNK
  10. PANTOPRAZOLE [Concomitant]
     Dosage: 450 MG, UNK

REACTIONS (3)
  - RENAL IMPAIRMENT [None]
  - CARDIAC FAILURE [None]
  - GLOMERULAR FILTRATION RATE DECREASED [None]
